FAERS Safety Report 13121302 (Version 4)
Quarter: 2017Q2

REPORT INFORMATION
  Report Type: Spontaneous
  Country: ES (occurrence: ES)
  Receive Date: 20170117
  Receipt Date: 20170626
  Transmission Date: 20170830
  Serious: Yes (Other)
  Sender: FDA-Public Use
  Company Number: ES-AMGEN-ESPSP2016178502

PATIENT
  Age: 74 Year
  Sex: Female
  Weight: 65 kg

DRUGS (1)
  1. PROLIA [Suspect]
     Active Substance: DENOSUMAB
     Indication: PRODUCT USED FOR UNKNOWN INDICATION
     Dosage: UNK, Q6MO
     Route: 065
     Dates: start: 20160228

REACTIONS (10)
  - Osteitis [Recovering/Resolving]
  - Impaired healing [Unknown]
  - Medical device removal [Unknown]
  - Bone pain [Not Recovered/Not Resolved]
  - Swelling face [Not Recovered/Not Resolved]
  - Osteonecrosis of jaw [Unknown]
  - Hypophagia [Unknown]
  - Mouth haemorrhage [Unknown]
  - Gingival bleeding [Unknown]
  - Blood parathyroid hormone increased [Unknown]

NARRATIVE: CASE EVENT DATE: 20160828
